FAERS Safety Report 8850080 (Version 2)
Quarter: 2012Q4

REPORT INFORMATION
  Report Type: Report from Study
  Country: US (occurrence: US)
  Receive Date: 20121019
  Receipt Date: 20121109
  Transmission Date: 20130627
  Serious: Yes (Death)
  Sender: FDA-Public Use
  Company Number: US-GLAXOSMITHKLINE-A0981213D

PATIENT
  Age: 53 Year
  Sex: Female
  Weight: 60.6 kg

DRUGS (4)
  1. OFATUMUMAB [Suspect]
     Indication: DIFFUSE LARGE B-CELL LYMPHOMA REFRACTORY
     Route: 042
     Dates: start: 20120405
  2. DEXAMETHASONE [Suspect]
     Indication: DIFFUSE LARGE B-CELL LYMPHOMA REFRACTORY
     Dosage: 40MG Every 3 weeks
     Route: 042
     Dates: start: 20120405
  3. CISPLATIN [Suspect]
     Indication: DIFFUSE LARGE B-CELL LYMPHOMA REFRACTORY
     Dosage: 100MGM2 Every 3 weeks
     Route: 042
     Dates: start: 20120405
  4. CYTARABINE [Suspect]
     Indication: DIFFUSE LARGE B-CELL LYMPHOMA REFRACTORY
     Dosage: 4MGM2 Every 3 weeks
     Route: 042
     Dates: start: 20120406

REACTIONS (2)
  - Pneumonia cytomegaloviral [Fatal]
  - Hypotension [Recovered/Resolved]
